FAERS Safety Report 21212404 (Version 1)
Quarter: 2022Q3

REPORT INFORMATION
  Report Type: Spontaneous
  Country: PH (occurrence: None)
  Receive Date: 20220815
  Receipt Date: 20220815
  Transmission Date: 20221027
  Serious: Yes (Death)
  Sender: FDA-Public Use
  Company Number: 2022A284296

PATIENT
  Age: 58 Year
  Sex: Female

DRUGS (1)
  1. LYNPARZA [Suspect]
     Active Substance: OLAPARIB
     Indication: Ovarian cancer
     Dosage: 150.0MG UNKNOWN
     Route: 048
     Dates: start: 202207, end: 20220725

REACTIONS (2)
  - Renal failure [Fatal]
  - Multiple organ dysfunction syndrome [Fatal]
